FAERS Safety Report 5081947-2 (Version None)
Quarter: 2006Q3

REPORT INFORMATION
  Report Type: 
  Country: None (occurrence: None)
  Receive Date: 20060811
  Receipt Date: 20060804
  Transmission Date: 20061208
  Serious: Yes (Hospitalization)
  Sender: FDA-Public Use
  Company Number: GXKR2006GB04535

PATIENT
  Age: 64 Year
  Sex: Male

DRUGS (6)
  1. CO-AMOXICLAV         (AMOXICILLIN, CLAVULANATE) [Suspect]
     Indication: URINARY TRACT INFECTION
     Dosage: 625 MG, TID, ORAL
     Route: 048
     Dates: start: 20060606, end: 20060610
  2. ENALAPRIL MALEATE [Concomitant]
  3. ESOMEPRAZOLE    (ESOMEPRAZOLE) [Concomitant]
  4. MELOXICAM            (MELOXICAM) [Concomitant]
  5. NEORAL [Concomitant]
  6. QUININE SULFATE [Concomitant]

REACTIONS (6)
  - ALANINE AMINOTRANSFERASE INCREASED [None]
  - BLOOD ALBUMIN ABNORMAL [None]
  - BLOOD ALKALINE PHOSPHATASE INCREASED [None]
  - BLOOD BILIRUBIN INCREASED [None]
  - GAMMA-GLUTAMYLTRANSFERASE INCREASED [None]
  - JAUNDICE [None]
